FAERS Safety Report 10088970 (Version 2)
Quarter: 2014Q2

REPORT INFORMATION
  Report Type: Report from Study
  Country: US (occurrence: US)
  Receive Date: 20140421
  Receipt Date: 20140429
  Transmission Date: 20141212
  Serious: Yes (Death)
  Sender: FDA-Public Use
  Company Number: PHEH2014US007792

PATIENT
  Sex: Male

DRUGS (1)
  1. ZOMETA [Suspect]
     Indication: BRONCHIAL CARCINOMA
     Dosage: 4 MG

REACTIONS (3)
  - Metastases to bone [Fatal]
  - Lung neoplasm malignant [Fatal]
  - Second primary malignancy [Fatal]
